FAERS Safety Report 18103586 (Version 1)
Quarter: 2020Q3

REPORT INFORMATION
  Report Type: Spontaneous
  Country: US (occurrence: US)
  Receive Date: 20200731
  Receipt Date: 20200731
  Transmission Date: 20201103
  Serious: No
  Sender: FDA-Public Use
  Company Number: None

PATIENT

DRUGS (1)
  1. GOOD DAY HAND SANITIZER [Suspect]
     Active Substance: ALCOHOL
     Dosage: ?          QUANTITY:8 OUNCE(S);?
     Route: 061

REACTIONS (1)
  - Nausea [None]
